FAERS Safety Report 4938477-5 (Version None)
Quarter: 2006Q1

REPORT INFORMATION
  Report Type: 
  Country: None (occurrence: None)
  Receive Date: 20060302
  Receipt Date: 20060208
  Transmission Date: 20060701
  Serious: Yes (Hospitalization, Other)
  Sender: FDA-Public Use
  Company Number: FR200602001736

PATIENT
  Age: 85 Year
  Sex: Female

DRUGS (6)
  1. FORTEO [Suspect]
     Indication: OSTEOPOROSIS
     Dosage: 20 UG, DAILY (1/D), SUBCUTANEOUS
     Route: 058
     Dates: start: 20050228, end: 20051224
  2. FORTEO [Suspect]
     Indication: OSTEOPOROSIS
     Dosage: 20 UG, DAILY (1/D), SUBCUTANEOUS
     Route: 058
     Dates: start: 20060124
  3. FORTEO [Concomitant]
  4. MEGACE [Concomitant]
  5. MOTILIUM [Concomitant]
  6. ESOMEPRAZOLE (ESOMEPRAZOLE) [Concomitant]

REACTIONS (3)
  - CONTRALATERAL BREAST CANCER [None]
  - PHLEBITIS [None]
  - PULMONARY EMBOLISM [None]
